FAERS Safety Report 12701227 (Version 1)
Quarter: 2016Q3

REPORT INFORMATION
  Report Type: Spontaneous
  Country: BR (occurrence: BR)
  Receive Date: 20160831
  Receipt Date: 20160831
  Transmission Date: 20161109
  Serious: Yes (Other)
  Sender: FDA-Public Use
  Company Number: BR-ROCHE-1820551

PATIENT
  Sex: Male

DRUGS (6)
  1. LEXOTAN [Suspect]
     Active Substance: BROMAZEPAM
     Indication: ANXIETY
     Route: 065
  2. LOSARTAN. [Concomitant]
     Active Substance: LOSARTAN
     Indication: HYPERTENSION
  3. RIVOTRIL [Suspect]
     Active Substance: CLONAZEPAM
     Indication: ANXIETY
     Route: 065
  4. METFORMIN [Concomitant]
     Active Substance: METFORMIN HYDROCHLORIDE
     Route: 065
  5. LEXOTAN [Suspect]
     Active Substance: BROMAZEPAM
     Indication: NERVOUSNESS
     Route: 065
  6. RIVOTRIL [Suspect]
     Active Substance: CLONAZEPAM
     Indication: NERVOUSNESS

REACTIONS (16)
  - Pain in extremity [Unknown]
  - Vertigo [Unknown]
  - Irritability [Unknown]
  - Fall [Unknown]
  - Nausea [Unknown]
  - Muscle atrophy [Unknown]
  - Pain [Unknown]
  - Balance disorder [Unknown]
  - Ill-defined disorder [Unknown]
  - Hypokinesia [Unknown]
  - Headache [Unknown]
  - Depression [Unknown]
  - Asthenia [Unknown]
  - Depressed mood [Unknown]
  - Fatigue [Unknown]
  - Drug ineffective [Unknown]
